FAERS Safety Report 8536141-7 (Version None)
Quarter: 2012Q3

REPORT INFORMATION
  Report Type: 
  Country: None (occurrence: None)
  Receive Date: 20120725
  Receipt Date: 20120719
  Transmission Date: 20120928
  Serious: Yes (Hospitalization, Other)
  Sender: FDA-Public Use
  Company Number: VE-PFIZER INC-2012170905

PATIENT
  Age: 59 Year
  Sex: Male

DRUGS (5)
  1. CARVEDILOL [Concomitant]
     Dosage: 25 MG, 1X/DAY
     Route: 048
  2. PLAVIX [Concomitant]
     Dosage: 75 MG, 1X/DAY
     Route: 048
  3. ADALAT [Concomitant]
     Dosage: 30 MG, 1X/DAY
     Route: 048
  4. AMARYL [Concomitant]
     Dosage: 5 MG, 1X/DAY
     Route: 048
  5. LIPITOR [Suspect]
     Indication: HYPERCHOLESTEROLAEMIA
     Dosage: 40 MG, 1X/DAY
     Route: 048
     Dates: start: 20110201

REACTIONS (2)
  - COUGH [None]
  - CORONARY ARTERY DISEASE [None]
